FAERS Safety Report 7655242-9 (Version None)
Quarter: 2011Q3

REPORT INFORMATION
  Report Type: 
  Country: None (occurrence: None)
  Receive Date: 20110801
  Receipt Date: 20110801
  Transmission Date: 20111222
  Serious: Yes (Life-Threatening, Hospitalization)
  Sender: FDA-Public Use
  Company Number: 2011MA008866

PATIENT
  Age: 11 Year
  Sex: Male

DRUGS (3)
  1. HYDROCORTISONE 1% OINTMENT [Suspect]
     Indication: ACUTE MYELOID LEUKAEMIA
     Dosage: ;UNK UNK
  2. CYTARABINE [Suspect]
     Indication: ACUTE MYELOID LEUKAEMIA
     Dosage: ;UNK IV
     Route: 042
  3. METHOTREXATE [Suspect]
     Indication: ACUTE MYELOID LEUKAEMIA
     Dosage: UNK; IV
     Route: 042

REACTIONS (9)
  - BLOOD CULTURE POSITIVE [None]
  - FEBRILE NEUTROPENIA [None]
  - APPENDICITIS [None]
  - ASPERGILLOSIS [None]
  - ENTEROBACTER INFECTION [None]
  - PYREXIA [None]
  - CATHETER SITE ERYTHEMA [None]
  - SALMONELLA TEST POSITIVE [None]
  - STAPHYLOCOCCAL INFECTION [None]
